FAERS Safety Report 16788961 (Version 1)
Quarter: 2019Q3

REPORT INFORMATION
  Report Type: Spontaneous
  Country: US (occurrence: US)
  Receive Date: 20190910
  Receipt Date: 20190910
  Transmission Date: 20191005
  Serious: Yes (Hospitalization, Other)
  Sender: FDA-Public Use
  Company Number: US-CIPLA LTD.-2019US06160

PATIENT

DRUGS (1)
  1. BUPROPION HYDROCHLORIDE SR [Suspect]
     Active Substance: BUPROPION HYDROCHLORIDE
     Dosage: UNK, 90-DAY SUPPLY OF 450 MG
     Route: 048

REACTIONS (6)
  - Hypotension [Unknown]
  - Torsade de pointes [Unknown]
  - Generalised tonic-clonic seizure [Unknown]
  - Pulseless electrical activity [Unknown]
  - Ventricular tachycardia [Unknown]
  - Overdose [Unknown]
